FAERS Safety Report 11228169 (Version 1)
Quarter: 2015Q2

REPORT INFORMATION
  Report Type: Spontaneous
  Country: US (occurrence: None)
  Receive Date: 20150629
  Receipt Date: 20150629
  Transmission Date: 20150821
  Serious: Yes (Hospitalization)
  Sender: FDA-Public Use
  Company Number: None

PATIENT
  Age: 66 Year
  Sex: Male
  Weight: 54.5 kg

DRUGS (1)
  1. ENOXAPARIN [Suspect]
     Active Substance: ENOXAPARIN
     Indication: PULMONARY EMBOLISM
     Route: 058
     Dates: start: 20150403, end: 20150510

REACTIONS (4)
  - Haemoglobin decreased [None]
  - Haematoma [None]
  - Shock haemorrhagic [None]
  - Muscle haemorrhage [None]

NARRATIVE: CASE EVENT DATE: 20150510
